FAERS Safety Report 6984739-X (Version None)
Quarter: 2010Q3

REPORT INFORMATION
  Report Type: 
  Country: None (occurrence: None)
  Receive Date: 20100915
  Receipt Date: 20100906
  Transmission Date: 20110219
  Serious: Yes (Other)
  Sender: FDA-Public Use
  Company Number: GB-ASTRAZENECA-2010SE41875

PATIENT
  Age: 69 Year
  Sex: Male

DRUGS (2)
  1. OMEPRAZOLE [Suspect]
     Dosage: 20 MG
     Route: 048
  2. CIPRALEX [Suspect]
     Dosage: 1/1 DAY

REACTIONS (1)
  - CEREBRAL HAEMORRHAGE [None]
